FAERS Safety Report 8814342 (Version 1)
Quarter: 2012Q4

REPORT INFORMATION
  Report Type: Spontaneous
  Country: US (occurrence: None)
  Receive Date: 20120925
  Receipt Date: 20120925
  Transmission Date: 20130627
  Serious: Yes (Hospitalization)
  Sender: FDA-Public Use
  Company Number: UTC-023227

PATIENT
  Age: 56 Year
  Sex: Female

DRUGS (2)
  1. REMODULIN (10 MILLIGRAM/MILLILITERS, INJECTION FOR INFUSION) (TREPROSTINIL SODIUM) [Suspect]
     Indication: PRIMARY PULMONARY HYPERTENSION
     Dosage: 190.08 ug/kg (0.132 ug/kg, 1 in 1 min), subcutaneous
     Dates: start: 20090723
  2. LETAIRIS [Concomitant]

REACTIONS (6)
  - Gastric ulcer haemorrhage [None]
  - Upper gastrointestinal haemorrhage [None]
  - Vasodilatation [None]
  - Scleroderma [None]
  - Arteriovenous malformation [None]
  - Condition aggravated [None]
